APPROVED DRUG PRODUCT: LACTULOSE
Active Ingredient: LACTULOSE
Strength: 10GM/PACKET
Dosage Form/Route: FOR SOLUTION;ORAL
Application: A217914 | Product #001 | TE Code: AA
Applicant: PAI HOLDINGS LLC
Approved: Mar 14, 2025 | RLD: No | RS: No | Type: RX